FAERS Safety Report 4298476-6 (Version None)
Quarter: 2004Q1

REPORT INFORMATION
  Report Type: 
  Country: None (occurrence: None)
  Receive Date: 20040218
  Receipt Date: 20031009
  Transmission Date: 20041129
  Serious: No
  Sender: FDA-Public Use
  Company Number: US-BRISTOL-MYERS SQUIBB COMPANY-12407045

PATIENT
  Age: 27 Year
  Sex: Female
  Weight: 77 kg

DRUGS (6)
  1. STADOL [Suspect]
     Indication: MIGRAINE
     Dosage: 1 SPRAY; STARTED THERAPY 6 MONTHS AGO
     Route: 045
     Dates: start: 20030101
  2. NORVASC [Concomitant]
  3. RISPERDAL [Concomitant]
  4. WELLBUTRIN [Concomitant]
  5. TOPAMAX [Concomitant]
  6. XANAX [Concomitant]

REACTIONS (1)
  - DRUG INEFFECTIVE [None]
